FAERS Safety Report 15096917 (Version 1)
Quarter: 2018Q3

REPORT INFORMATION
  Report Type: Spontaneous
  Country: IT (occurrence: IT)
  Receive Date: 20180702
  Receipt Date: 20180702
  Transmission Date: 20181010
  Serious: Yes (Other)
  Sender: FDA-Public Use
  Company Number: IT-BAYER-2018-120369

PATIENT
  Age: 74 Year
  Sex: Male

DRUGS (1)
  1. REGORAFENIB. [Suspect]
     Active Substance: REGORAFENIB
     Indication: COLORECTAL CANCER METASTATIC

REACTIONS (6)
  - Chromaturia [None]
  - IgA nephropathy [None]
  - Hypertension [None]
  - Haematuria [Recovered/Resolved]
  - Renal injury [Recovering/Resolving]
  - Proteinuria [Not Recovered/Not Resolved]
